FAERS Safety Report 6981199-X (Version None)
Quarter: 2010Q3

REPORT INFORMATION
  Report Type: 
  Country: None (occurrence: None)
  Receive Date: 20100914
  Receipt Date: 20100902
  Transmission Date: 20110219
  Serious: Yes (Other)
  Sender: FDA-Public Use
  Company Number: US-PFIZER INC-2010111642

PATIENT
  Sex: Female

DRUGS (1)
  1. ALDACTONE [Suspect]
     Dosage: 50 MG, 1X/DAY

REACTIONS (2)
  - AMENORRHOEA [None]
  - MOOD SWINGS [None]
